FAERS Safety Report 5193768-0 (Version None)
Quarter: 2006Q4

REPORT INFORMATION
  Report Type: 
  Country: None (occurrence: None)
  Receive Date: 20061228
  Receipt Date: 20061211
  Transmission Date: 20070319
  Serious: Yes (Death, Hospitalization)
  Sender: FDA-Public Use
  Company Number: FR-GLAXOSMITHKLINE-B0451656A

PATIENT
  Age: 64 Year
  Sex: Female

DRUGS (11)
  1. CIBLOR [Suspect]
     Indication: BRONCHOPNEUMOPATHY
     Dosage: 1G THREE TIMES PER DAY
     Route: 048
     Dates: start: 20051011, end: 20051018
  2. SEGLOR [Concomitant]
     Dates: start: 20040615
  3. ALLOPURINOL SODIUM [Concomitant]
     Dates: start: 20040615
  4. PAROXETINE HCL [Concomitant]
     Dates: start: 20040615
  5. DIAMICRON [Concomitant]
     Dates: start: 20040615
  6. DEPAMIDE [Concomitant]
     Dates: start: 20050715
  7. TAHOR [Concomitant]
  8. NOCTRAN [Concomitant]
  9. ALPRAZOLAM [Concomitant]
  10. PROPRANOLOL [Concomitant]
  11. EFFEXOR [Concomitant]

REACTIONS (30)
  - CANDIDA SEPSIS [None]
  - CARDIAC FAILURE [None]
  - CLOSTRIDIUM DIFFICILE COLITIS [None]
  - COLITIS [None]
  - CONFUSIONAL STATE [None]
  - CULTURE POSITIVE [None]
  - CULTURE STOOL POSITIVE [None]
  - CULTURE URINE POSITIVE [None]
  - CYTOMEGALOVIRUS ANTIBODY POSITIVE [None]
  - DEATH [None]
  - DEHYDRATION [None]
  - DIARRHOEA [None]
  - DRUG INEFFECTIVE [None]
  - ESCHERICHIA INFECTION [None]
  - ESCHERICHIA SEPSIS [None]
  - GLOSSITIS [None]
  - MALNUTRITION [None]
  - ORAL FUNGAL INFECTION [None]
  - PATHOGEN RESISTANCE [None]
  - PERIODONTAL DISEASE [None]
  - PSEUDOMEMBRANOUS COLITIS [None]
  - PSEUDOMONAS INFECTION [None]
  - PYREXIA [None]
  - RENAL FAILURE [None]
  - RESPIRATORY DISTRESS [None]
  - SEPTIC SHOCK [None]
  - STAPHYLOCOCCAL INFECTION [None]
  - THERAPEUTIC RESPONSE DECREASED [None]
  - URINARY TRACT INFECTION PSEUDOMONAL [None]
  - URINARY TRACT INFECTION STAPHYLOCOCCAL [None]
